FAERS Safety Report 6837757-6 (Version None)
Quarter: 2010Q3

REPORT INFORMATION
  Report Type: 
  Country: None (occurrence: None)
  Receive Date: 20100713
  Receipt Date: 20070521
  Transmission Date: 20110219
  Serious: No
  Sender: FDA-Public Use
  Company Number: US-PFIZER INC-2007041540

PATIENT

DRUGS (2)
  1. CHANTIX [Suspect]
  2. SYNTHROID [Interacting]
     Indication: HYPOTHYROIDISM

REACTIONS (3)
  - CONSTIPATION [None]
  - DRUG INTERACTION [None]
  - HYPERTHYROIDISM [None]
